FAERS Safety Report 4677370-2 (Version None)
Quarter: 2005Q2

REPORT INFORMATION
  Report Type: 
  Country: None (occurrence: None)
  Receive Date: 20050526
  Receipt Date: 20050526
  Transmission Date: 20051028
  Serious: Yes (Other)
  Sender: FDA-Public Use
  Company Number: None

PATIENT
  Sex: Female

DRUGS (2)
  1. BUPROPRIN (GENERIC) 150 MG ONE BID [Suspect]
     Indication: MAJOR DEPRESSION
     Dates: start: 20040501
  2. BUPROPRIN (GENERIC) 150 MG ONE BID [Suspect]
     Indication: MAJOR DEPRESSION
     Dates: start: 20050501

REACTIONS (5)
  - AGORAPHOBIA [None]
  - ANXIETY [None]
  - CONDITION AGGRAVATED [None]
  - DEPRESSION [None]
  - THERAPEUTIC RESPONSE UNEXPECTED WITH DRUG SUBSTITUTION [None]
